FAERS Safety Report 7608781-0 (Version None)
Quarter: 2011Q3

REPORT INFORMATION
  Report Type: 
  Country: None (occurrence: None)
  Receive Date: 20110714
  Receipt Date: 20110708
  Transmission Date: 20111222
  Serious: Yes (Death, Hospitalization)
  Sender: FDA-Public Use
  Company Number: DE-CELGENEUS-062-50794-11043320

PATIENT
  Age: 72 Year
  Sex: Female
  Weight: 72 kg

DRUGS (9)
  1. CYTARABINE [Concomitant]
     Indication: CHEMOTHERAPY
     Dosage: 160 MILLIGRAM
     Route: 051
     Dates: start: 20110316, end: 20110322
  2. DAUNORUBICIN HCL [Concomitant]
     Indication: CHEMOTHERAPY
     Dosage: 60G/MEXP2
     Route: 051
     Dates: start: 20110318, end: 20110320
  3. VFEND [Concomitant]
     Indication: INFECTION
     Dosage: 800 GRAM
     Route: 048
     Dates: start: 20110405, end: 20110420
  4. VIDAZA [Suspect]
     Dosage: 75G/MEXP2
     Route: 051
     Dates: start: 20110311, end: 20110315
  5. MEROPENEM [Concomitant]
     Indication: INFECTION
     Dosage: 9 GRAM
     Route: 051
     Dates: start: 20110411, end: 20110421
  6. AVELOX [Concomitant]
     Indication: INFECTION
     Dosage: 400 GRAM
     Route: 051
     Dates: start: 20110421, end: 20110422
  7. CANCIDAS [Concomitant]
     Indication: INFECTION
     Dosage: 70 MILLIGRAM
     Route: 051
     Dates: start: 20110421, end: 20110422
  8. NOXAFIL [Concomitant]
     Indication: INFECTION
     Dosage: 40 MILLILITER
     Route: 048
     Dates: start: 20110420, end: 20110421
  9. CEFTAZIDIM [Concomitant]
     Indication: INFECTION
     Dosage: 18 GRAM
     Route: 051
     Dates: start: 20110421, end: 20110422

REACTIONS (3)
  - CONVULSION [None]
  - SEPSIS [None]
  - RESPIRATORY FAILURE [None]
